FAERS Safety Report 9898912 (Version 1)
Quarter: 2014Q1

REPORT INFORMATION
  Report Type: Spontaneous
  Country: US (occurrence: US)
  Receive Date: 20140214
  Receipt Date: 20140214
  Transmission Date: 20141002
  Serious: Yes (Other)
  Sender: FDA-Public Use
  Company Number: US-ELI_LILLY_AND_COMPANY-US201402001880

PATIENT
  Sex: Male

DRUGS (18)
  1. HUMALOG LISPRO [Suspect]
     Indication: TYPE 2 DIABETES MELLITUS
     Dosage: UNK, PRN
     Route: 065
     Dates: start: 201312
  2. PLAVIX [Suspect]
     Indication: PRODUCT USED FOR UNKNOWN INDICATION
     Route: 065
  3. LEVEMIR [Concomitant]
  4. TYLENOL W/CODEINE NO. 3 [Concomitant]
  5. CLONAZEPAM [Concomitant]
  6. IRON [Concomitant]
  7. GABAPENTIN [Concomitant]
  8. KLOR-CON [Concomitant]
  9. FISH OIL [Concomitant]
  10. METOPROLOL [Concomitant]
  11. NITROGLYCERIN [Concomitant]
  12. OXYGEN [Concomitant]
     Dosage: 3 L, UNK
  13. OMEPRAZOLE [Concomitant]
  14. DOCUSATE [Concomitant]
  15. TRAZODONE [Concomitant]
  16. ATROVENT [Concomitant]
  17. XOPENEX HFA [Concomitant]
  18. LISINOPRIL [Concomitant]

REACTIONS (5)
  - Intestinal haemorrhage [Not Recovered/Not Resolved]
  - Gastric haemorrhage [Not Recovered/Not Resolved]
  - Abdominal distension [Not Recovered/Not Resolved]
  - Polyp [Not Recovered/Not Resolved]
  - Mass [Not Recovered/Not Resolved]
